FAERS Safety Report 5860885-9 (Version None)
Quarter: 2008Q3

REPORT INFORMATION
  Report Type: 
  Country: None (occurrence: None)
  Receive Date: 20080826
  Receipt Date: 20080818
  Transmission Date: 20090109
  Serious: Yes (Hospitalization, Other)
  Sender: FDA-Public Use
  Company Number: 2008SP016810

PATIENT
  Age: 57 Year
  Sex: Female

DRUGS (5)
  1. PEG-INTRON [Suspect]
     Indication: HEPATITIS C
     Dosage: SC
     Route: 058
     Dates: start: 20080701
  2. RIBAVIRIN [Suspect]
     Indication: HEPATITIS C
     Dosage: IV
     Route: 042
     Dates: start: 20080701
  3. MOXIFLOXACIN HCL [Suspect]
     Indication: PNEUMONIA
     Dosage: PO
     Route: 048
     Dates: start: 20080815, end: 20080817
  4. ANTIBIOTIC [Suspect]
     Indication: PNEUMONIA
     Dosage: IV
     Route: 042
     Dates: start: 20080817
  5. DIURETIC [Concomitant]

REACTIONS (13)
  - AGITATION [None]
  - BLOOD ALBUMIN DECREASED [None]
  - BLOOD SODIUM DECREASED [None]
  - BODY TEMPERATURE INCREASED [None]
  - DIARRHOEA [None]
  - DRUG DOSE OMISSION [None]
  - DRUG HYPERSENSITIVITY [None]
  - EATING DISORDER [None]
  - FATIGUE [None]
  - FEELING ABNORMAL [None]
  - PNEUMONIA [None]
  - PRURITUS [None]
  - URTICARIA [None]
